FAERS Safety Report 23399577 (Version 2)
Quarter: 2024Q1

REPORT INFORMATION
  Report Type: Spontaneous
  Country: CA (occurrence: CA)
  Receive Date: 20240113
  Receipt Date: 20240311
  Transmission Date: 20240410
  Serious: Yes (Other)
  Sender: FDA-Public Use
  Company Number: CA-CELLTRION INC.-2023CA012052

PATIENT

DRUGS (6)
  1. INFLECTRA [Suspect]
     Active Substance: INFLIXIMAB-DYYB
     Indication: Sarcoidosis
     Dosage: 425 MG, EVERY 6 WEEK (WEEK 0 AND 2 AND THEN EVERY 6 WEEKS)
     Route: 042
     Dates: start: 20230814
  2. INFLECTRA [Suspect]
     Active Substance: INFLIXIMAB-DYYB
     Dosage: 425 MG, EVERY 6 WEEK, WEEK 0 AND 2 AND THEN EVERY 6 WEEKS
     Route: 042
     Dates: start: 20231122
  3. INFLECTRA [Suspect]
     Active Substance: INFLIXIMAB-DYYB
     Dosage: 425 MG, EVERY 6 WEEK, WEEK 0 AND 2 AND THEN Q 6 WEEKS (6 WEEKS AND 1 DAY)
     Route: 042
     Dates: start: 20240104
  4. METHOTREXATE [Concomitant]
     Active Substance: METHOTREXATE
     Dosage: 20 MG, WEEKLY
  5. PREDNISONE [Concomitant]
     Active Substance: PREDNISONE
     Dosage: 10 MG
  6. ROSUVASTATIN [Concomitant]
     Active Substance: ROSUVASTATIN
     Dosage: 1 DF

REACTIONS (2)
  - Oxygen saturation abnormal [Not Recovered/Not Resolved]
  - Off label use [Unknown]
